FAERS Safety Report 4349466-6 (Version None)
Quarter: 2004Q2

REPORT INFORMATION
  Report Type: 
  Country: None (occurrence: None)
  Receive Date: 20040426
  Receipt Date: 20040413
  Transmission Date: 20050107
  Serious: Yes (Hospitalization)
  Sender: FDA-Public Use
  Company Number: 204799

PATIENT
  Age: 63 Year
  Sex: Female

DRUGS (6)
  1. RITUXIMAB              (RITUXIMAB) [Suspect]
     Indication: CHRONIC LYMPHOCYTIC LEUKAEMIA
     Dosage: 500 MG, INTRAVENOUS
     Route: 042
     Dates: start: 20031023, end: 20040223
  2. RITUXIMAB              (RITUXIMAB) [Suspect]
     Indication: CHRONIC LYMPHOCYTIC LEUKAEMIA
     Dosage: 500 MG, INTRAVENOUS
     Route: 042
     Dates: start: 20040301
  3. FLUDARABINE PHOSPHATE [Suspect]
     Indication: CHRONIC LYMPHOCYTIC LEUKAEMIA
     Dosage: 25 MG/M2, INTRAVENOUS
     Route: 042
     Dates: start: 20031023, end: 20040223
  4. CYCLOPHOSPHAMIDE [Suspect]
     Indication: CHRONIC LYMPHOCYTIC LEUKAEMIA
     Dosage: 250 MG/M2, INTRAVENOUS
     Route: 042
  5. ACICLOVIR (ACYCLOVIR) [Concomitant]
  6. PENTAMIDINE (PETAMIDINE) [Concomitant]

REACTIONS (3)
  - BRONCHITIS [None]
  - FEBRILE NEUTROPENIA [None]
  - PLATELET COUNT DECREASED [None]
